FAERS Safety Report 21702387 (Version 1)
Quarter: 2022Q4

REPORT INFORMATION
  Report Type: Spontaneous
  Country: US (occurrence: US)
  Receive Date: 20221208
  Receipt Date: 20221208
  Transmission Date: 20230113
  Serious: Yes (Other)
  Sender: FDA-Public Use
  Company Number: US-AMGEN-USASP2022210626

PATIENT
  Age: 9 Year
  Sex: Female

DRUGS (2)
  1. INFLIXIMAB [Suspect]
     Active Substance: INFLIXIMAB
     Indication: Crohn^s disease
     Dosage: UNK
     Route: 065
  2. METHOTREXATE [Suspect]
     Active Substance: METHOTREXATE
     Indication: Crohn^s disease
     Dosage: 12 MILLIGRAM/M^2
     Route: 058

REACTIONS (3)
  - Morphoea [Recovered/Resolved]
  - Lichen sclerosus [Recovered/Resolved]
  - Dermatitis psoriasiform [Recovered/Resolved]
